FAERS Safety Report 17803675 (Version 1)
Quarter: 2020Q2

REPORT INFORMATION
  Report Type: Spontaneous
  Country: US (occurrence: US)
  Receive Date: 20200519
  Receipt Date: 20200519
  Transmission Date: 20200714
  Serious: Yes (Hospitalization, Other)
  Sender: FDA-Public Use
  Company Number: US-PARATEK PHARMACEUTICALS, INC.-2020PTK00060

PATIENT
  Age: 69 Year
  Sex: Female
  Weight: 123 kg

DRUGS (16)
  1. LANTUS [Concomitant]
     Active Substance: INSULIN GLARGINE
  2. FLUTICASONE. [Concomitant]
     Active Substance: FLUTICASONE
  3. HUMALOG [Concomitant]
     Active Substance: INSULIN LISPRO
  4. GABAPENTIN. [Concomitant]
     Active Substance: GABAPENTIN
  5. ATORVASTATIN [Concomitant]
     Active Substance: ATORVASTATIN
  6. NUZYRA [Suspect]
     Active Substance: OMADACYCLINE
     Indication: CELLULITIS
     Dosage: 100 MG, 1X/DAY
     Route: 042
     Dates: start: 20200421, end: 20200506
  7. WARFARIN [Concomitant]
     Active Substance: WARFARIN
  8. MULTIVITAMINS [Concomitant]
     Active Substance: VITAMINS
  9. DOCUSATE [Concomitant]
     Active Substance: DOCUSATE
  10. NORCO [Concomitant]
     Active Substance: ACETAMINOPHEN\HYDROCODONE BITARTRATE
  11. ASPIRIN. [Concomitant]
     Active Substance: ASPIRIN
  12. AMIODARONE [Concomitant]
     Active Substance: AMIODARONE
  13. PLAVIX [Concomitant]
     Active Substance: CLOPIDOGREL BISULFATE
  14. MOMETASONE [Concomitant]
     Active Substance: MOMETASONE
  15. NUZYRA [Suspect]
     Active Substance: OMADACYCLINE
     Dosage: 200 MG,^OVER 60 MINUTES^ ONCE
     Route: 042
     Dates: start: 20200420, end: 20200420
  16. ALBUTEROL. [Concomitant]
     Active Substance: ALBUTEROL

REACTIONS (3)
  - Cellulitis [Not Recovered/Not Resolved]
  - Drug ineffective [Recovered/Resolved]
  - Incorrect product administration duration [Recovered/Resolved]

NARRATIVE: CASE EVENT DATE: 2020
